FAERS Safety Report 24001080 (Version 1)
Quarter: 2024Q2

REPORT INFORMATION
  Report Type: Spontaneous
  Country: US (occurrence: None)
  Receive Date: 20240621
  Receipt Date: 20240621
  Transmission Date: 20240715
  Serious: Yes (Hospitalization)
  Sender: FDA-Public Use
  Company Number: 2024A139167

PATIENT
  Sex: Female

DRUGS (1)
  1. FARXIGA [Suspect]
     Active Substance: DAPAGLIFLOZIN PROPANEDIOL
     Route: 048

REACTIONS (6)
  - Blood glucose increased [Unknown]
  - Fungal infection [Unknown]
  - Intentional dose omission [Unknown]
  - Blood glucose fluctuation [Unknown]
  - Glycosylated haemoglobin abnormal [Unknown]
  - Muscle spasms [Unknown]
